FAERS Safety Report 6579285-1 (Version None)
Quarter: 2010Q1

REPORT INFORMATION
  Report Type: 
  Country: None (occurrence: None)
  Receive Date: 20100212
  Receipt Date: 20100201
  Transmission Date: 20100710
  Serious: No
  Sender: FDA-Public Use
  Company Number: US-B.I. PHARMACEUTICALS,INC./RIDGEFIELD-2010-BP-01207BP

PATIENT
  Age: 55 Year
  Sex: Male

DRUGS (5)
  1. FLOMAX [Suspect]
  2. ZICAM COLD REMEDY ORAL MIST [Suspect]
     Dates: start: 20091101
  3. CELEXA [Concomitant]
  4. GLUCOSAMINE [Concomitant]
  5. MULTI-VITAMIN [Concomitant]

REACTIONS (1)
  - AGEUSIA [None]
